FAERS Safety Report 6998846-9 (Version None)
Quarter: 2010Q3

REPORT INFORMATION
  Report Type: 
  Country: None (occurrence: None)
  Receive Date: 20100920
  Receipt Date: 20100119
  Transmission Date: 20110219
  Serious: Yes (Hospitalization)
  Sender: FDA-Public Use
  Company Number: US-ASTRAZENECA-2010SE02335

PATIENT
  Age: 43 Year
  Sex: Female
  Weight: 113.4 kg

DRUGS (5)
  1. SEROQUEL XR [Suspect]
     Indication: BIPOLAR DISORDER
     Route: 048
     Dates: start: 20090101
  2. LITHIUM CARBONATE [Concomitant]
  3. CELEXA [Concomitant]
  4. CLONAZEPAM [Concomitant]
     Indication: ANXIETY
  5. TRAZODONE HCL [Concomitant]
     Indication: SLEEP DISORDER

REACTIONS (2)
  - DRUG DOSE OMISSION [None]
  - SUICIDE ATTEMPT [None]
